FAERS Safety Report 16237313 (Version 1)
Quarter: 2019Q2

REPORT INFORMATION
  Report Type: Spontaneous
  Country: US (occurrence: US)
  Receive Date: 20190425
  Receipt Date: 20190425
  Transmission Date: 20190711
  Serious: Yes (Other)
  Sender: FDA-Public Use
  Company Number: US-GLENMARK PHARMACEUTICALS-2019GMK040035

PATIENT

DRUGS (2)
  1. GABAPENTIN TABLETS [Suspect]
     Active Substance: GABAPENTIN
     Indication: MYELITIS TRANSVERSE
     Dosage: 3600 MG, QD (2 TABLET, THREE TIMES A DAY)
     Route: 048
     Dates: start: 201708, end: 2018
  2. GABAPENTIN TABLETS [Suspect]
     Active Substance: GABAPENTIN
     Indication: NEUROMYELITIS OPTICA SPECTRUM DISORDER

REACTIONS (2)
  - Suicidal ideation [Unknown]
  - Drug ineffective for unapproved indication [Unknown]

NARRATIVE: CASE EVENT DATE: 201708
